FAERS Safety Report 24923094 (Version 2)
Quarter: 2025Q3

REPORT INFORMATION
  Report Type: Spontaneous
  Country: CA (occurrence: CA)
  Receive Date: 20250204
  Receipt Date: 20250809
  Transmission Date: 20251020
  Serious: Yes (Other)
  Sender: ALEXION PHARMACEUTICALS
  Company Number: CA-AstraZeneca-CH-00793968A

PATIENT
  Age: 74 Year
  Sex: Female

DRUGS (1)
  1. SEROQUEL [Suspect]
     Active Substance: QUETIAPINE FUMARATE
     Route: 065

REACTIONS (4)
  - Cardiac failure [Unknown]
  - Liver disorder [Unknown]
  - Diabetes mellitus [Unknown]
  - Renal injury [Unknown]
